FAERS Safety Report 6196876-0 (Version None)
Quarter: 2009Q2

REPORT INFORMATION
  Report Type: 
  Country: None (occurrence: None)
  Receive Date: 20090520
  Receipt Date: 20090515
  Transmission Date: 20091009
  Serious: Yes (Other)
  Sender: FDA-Public Use
  Company Number: IN-BRISTOL-MYERS SQUIBB COMPANY-14217582

PATIENT
  Age: 72 Year
  Sex: Male

DRUGS (6)
  1. BLINDED: APIXABAN [Suspect]
     Indication: THROMBOSIS PROPHYLAXIS
     Dosage: APIXABAN/PLACEBO 2 TABS BOTTLE #184855,5MG BID FROM 22SEP07-26SEP07 DOSE CORRECTED:26SEP07 ONGOING
     Route: 048
     Dates: start: 20070913
  2. WARFARIN SODIUM [Suspect]
     Indication: THROMBOSIS PROPHYLAXIS
     Dosage: 5MG FROM 22SEP07-ONG, REDUCED TO 4MG FROM 16OCT07
     Route: 048
     Dates: start: 20070913
  3. BLINDED: PLACEBO [Suspect]
     Indication: THROMBOSIS PROPHYLAXIS
     Dosage: APIXABAN/PLACEBO 2 TABS BOTTLE #184855,ALSO TAKEN FROM 22SEP07-ONG DOSE CORRECTED ON 22SEP07
     Route: 048
     Dates: start: 20070913
  4. DIGOXIN [Concomitant]
     Dates: start: 20030207
  5. FRUSEMIDE [Concomitant]
     Dates: start: 20030207
  6. ALDOSTIX [Concomitant]
     Dates: start: 20030207

REACTIONS (1)
  - ACCIDENTAL OVERDOSE [None]
